FAERS Safety Report 7299114-0 (Version None)
Quarter: 2011Q1

REPORT INFORMATION
  Report Type: 
  Country: None (occurrence: None)
  Receive Date: 20110216
  Receipt Date: 20110216
  Transmission Date: 20110831
  Serious: Yes (Hospitalization)
  Sender: FDA-Public Use
  Company Number: None

PATIENT
  Age: 42 Year
  Sex: Female
  Weight: 115.2136 kg

DRUGS (1)
  1. ALCOHOL PREP PAD STERIL TRIAD [Suspect]
     Indication: WOUND
     Dates: start: 20070305, end: 20070404

REACTIONS (1)
  - STAPHYLOCOCCAL INFECTION [None]
